FAERS Safety Report 10041537 (Version 5)
Quarter: 2014Q3

REPORT INFORMATION
  Report Type: Spontaneous
  Country: CH (occurrence: CH)
  Receive Date: 20140327
  Receipt Date: 20140731
  Transmission Date: 20150326
  Serious: Yes (Hospitalization, Other)
  Sender: FDA-Public Use
  Company Number: CH-INCYTE CORPORATION-2014IN000732

PATIENT
  Age: 76 Year
  Sex: Male

DRUGS (2)
  1. JAKAFI [Suspect]
     Active Substance: RUXOLITINIB
     Indication: MYELOFIBROSIS
     Dosage: 15 MG, BID
     Route: 065
     Dates: start: 20131028, end: 20131218
  2. JAKAFI [Suspect]
     Active Substance: RUXOLITINIB
     Dosage: UNK UNK, UNK
     Route: 065

REACTIONS (12)
  - Respiratory distress [Recovering/Resolving]
  - Drug withdrawal syndrome [Recovering/Resolving]
  - C-reactive protein increased [Recovering/Resolving]
  - Blood alkaline phosphatase increased [Recovering/Resolving]
  - Blood lactate dehydrogenase increased [Recovering/Resolving]
  - Gamma-glutamyltransferase increased [Recovering/Resolving]
  - Escherichia bacteraemia [Recovering/Resolving]
  - Lung disorder [Unknown]
  - Respiratory failure [Recovering/Resolving]
  - Thrombosis [Recovering/Resolving]
  - Anaemia [Unknown]
  - Thrombocytopenia [Unknown]

NARRATIVE: CASE EVENT DATE: 20131218
